FAERS Safety Report 16151622 (Version 2)
Quarter: 2019Q3

REPORT INFORMATION
  Report Type: Report from Study
  Country: BR (occurrence: BR)
  Receive Date: 20190403
  Receipt Date: 20190801
  Transmission Date: 20191004
  Serious: Yes (Other)
  Sender: FDA-Public Use
  Company Number: PHHY2019BR075722

PATIENT
  Sex: Female
  Weight: 40 kg

DRUGS (11)
  1. ACLASTA [Suspect]
     Active Substance: ZOLEDRONIC ACID
     Dosage: 1 DF, Q12MO
     Route: 042
     Dates: start: 20190722
  2. BONE CAL [Concomitant]
     Indication: OSTEOPOROSIS
     Dosage: 1 DF, QD (10 YEARS AGO)
     Route: 048
  3. NORIPURUM [Concomitant]
     Active Substance: IRON POLYMALTOSE
     Indication: ANAEMIA
     Dosage: 1 DF, QMO (6 MONTHS AGO)
     Route: 058
  4. CALCITORAN [Concomitant]
     Indication: OSTEOPOROSIS
     Dosage: 1 DF, QD (6 MONTHS AGO)
     Route: 048
  5. ACLASTA [Suspect]
     Active Substance: ZOLEDRONIC ACID
     Indication: OSTEOPOROSIS
     Dosage: 1 DF, Q12MO
     Route: 042
  6. NEOFOLIC [Concomitant]
     Indication: ANAEMIA
     Dosage: 1 DF, QD (10 YEARS AGO)
     Route: 048
  7. ANCORON [Concomitant]
     Active Substance: AMIODARONE HYDROCHLORIDE
     Indication: ARRHYTHMIA
     Dosage: 1 DF, QD (15 YEARS AGO)
     Route: 048
  8. ACLASTA [Suspect]
     Active Substance: ZOLEDRONIC ACID
     Dosage: 1 DF, Q12MO
     Route: 042
     Dates: start: 201802, end: 201802
  9. ESCITALOPRAM [Concomitant]
     Active Substance: ESCITALOPRAM OXALATE
     Indication: ANXIETY
     Dosage: 1 DF, QD (15 YEARS AGO)
     Route: 048
  10. BROMAZEPAM [Concomitant]
     Active Substance: BROMAZEPAM
     Indication: ANXIETY
     Dosage: 1 DF, QD (15 YEARS AGO)
     Route: 048
  11. LABIRIN [Concomitant]
     Active Substance: BETAHISTINE
     Indication: LABYRINTHITIS
     Dosage: 1 DF, QD
     Route: 048

REACTIONS (1)
  - Cerebral thrombosis [Unknown]
